FAERS Safety Report 8823373 (Version 1)
Quarter: 2012Q4

REPORT INFORMATION
  Report Type: Report from Study
  Country: US (occurrence: US)
  Receive Date: 20121003
  Receipt Date: 20121003
  Transmission Date: 20130627
  Serious: Yes (Hospitalization)
  Sender: FDA-Public Use
  Company Number: US-BRISTOL-MYERS SQUIBB COMPANY-16998254

PATIENT
  Age: 65 Year
  Sex: Male
  Weight: 98 kg

DRUGS (1)
  1. IPILIMUMAB [Suspect]
     Indication: MALIGNANT MELANOMA
     Dosage: Last dose:20Aug12
     Route: 042
     Dates: start: 20120618

REACTIONS (2)
  - Dehydration [Unknown]
  - Constipation [Unknown]
